FAERS Safety Report 16395740 (Version 1)
Quarter: 2019Q2

REPORT INFORMATION
  Report Type: Spontaneous
  Country: US (occurrence: US)
  Receive Date: 20190605
  Receipt Date: 20190605
  Transmission Date: 20190711
  Serious: Yes (Hospitalization)
  Sender: FDA-Public Use
  Company Number: US-BAYER-2019-109322

PATIENT
  Age: 51 Year
  Sex: Male

DRUGS (5)
  1. CELEXA [CELECOXIB] [Concomitant]
     Active Substance: CELECOXIB
  2. DIAZEPAM. [Concomitant]
     Active Substance: DIAZEPAM
  3. CLONAZEPAM. [Concomitant]
     Active Substance: CLONAZEPAM
  4. BETASERON [Suspect]
     Active Substance: INTERFERON BETA-1B
     Indication: MULTIPLE SCLEROSIS
     Dosage: 0.25 MG, QOD
     Route: 058
     Dates: start: 20131010
  5. CITALOPRAM [Concomitant]
     Active Substance: CITALOPRAM HYDROBROMIDE

REACTIONS (1)
  - Jaw operation [None]
